FAERS Safety Report 5039410-0 (Version None)
Quarter: 2006Q2

REPORT INFORMATION
  Report Type: 
  Country: None (occurrence: None)
  Receive Date: 20060623
  Receipt Date: 20060614
  Transmission Date: 20061013
  Serious: Yes (Other)
  Sender: FDA-Public Use
  Company Number: 2006076036

PATIENT
  Age: 5 Year
  Sex: Male
  Weight: 14.4 kg

DRUGS (2)
  1. GENOTROPIN [Suspect]
     Indication: SMALL FOR DATES BABY
     Dosage: 0.7 MG (1 IN 1 D), SUBCUTANEOUS; 0.9 MG (1 IN 1 D), SUBCUTANEOUS
     Route: 058
     Dates: end: 20060601
  2. GENOTROPIN [Suspect]
     Indication: SMALL FOR DATES BABY
     Dosage: 0.7 MG (1 IN 1 D), SUBCUTANEOUS; 0.9 MG (1 IN 1 D), SUBCUTANEOUS
     Route: 058
     Dates: start: 20030301

REACTIONS (2)
  - CHOLESTEATOMA [None]
  - CONDITION AGGRAVATED [None]
